FAERS Safety Report 20061144 (Version 2)
Quarter: 2021Q4

REPORT INFORMATION
  Report Type: Spontaneous
  Country: US (occurrence: US)
  Receive Date: 20211112
  Receipt Date: 20211213
  Transmission Date: 20220303
  Serious: No
  Sender: FDA-Public Use
  Company Number: US-NOVARTISTESTPH-NVSC2021US253839

PATIENT
  Sex: Female

DRUGS (2)
  1. TERCONAZOLE [Suspect]
     Active Substance: TERCONAZOLE
     Indication: Product used for unknown indication
     Dosage: UNK (20 G)
     Route: 065
     Dates: start: 20211102
  2. TERCONAZOLE [Suspect]
     Active Substance: TERCONAZOLE
     Dosage: UNK (20 G)
     Route: 065
     Dates: start: 20211102

REACTIONS (2)
  - Application site pain [Unknown]
  - Product use issue [Unknown]
